FAERS Safety Report 14540308 (Version 3)
Quarter: 2018Q1

REPORT INFORMATION
  Report Type: Spontaneous
  Country: RO (occurrence: RO)
  Receive Date: 20180216
  Receipt Date: 20180312
  Transmission Date: 20180509
  Serious: Yes (Other)
  Sender: FDA-Public Use
  Company Number: RO-PFIZER INC-2018067004

PATIENT
  Age: 65 Year
  Sex: Male

DRUGS (11)
  1. TERTENSIF SR [Concomitant]
     Dosage: 1 DF, 1X/DAY
  2. PLAVIX [Concomitant]
     Active Substance: CLOPIDOGREL BISULFATE
     Dosage: 75 MG, DAILY
  3. SINTROM [Concomitant]
     Active Substance: ACENOCOUMAROL
     Dosage: UNK
  4. SUTENT [Suspect]
     Active Substance: SUNITINIB MALATE
     Indication: CLEAR CELL RENAL CELL CARCINOMA
     Dosage: 50 MG, CYCLIC 4/2 (4 WEEKS ON TREATMENT WITH 2 WEEKS OFF)
     Dates: start: 201201, end: 201304
  5. NIFEDIPIN [Concomitant]
     Active Substance: NIFEDIPINE
  6. CADUET [Concomitant]
     Active Substance: AMLODIPINE BESYLATE\ATORVASTATIN CALCIUM
     Dosage: 1 DF, 1X/DAY
  7. SUTENT [Suspect]
     Active Substance: SUNITINIB MALATE
     Dosage: 25 MG/DAY, CYCLIC 4/2 (4 WEEKS ON TREATMENT WITH 2 WEEKSOFF)
     Dates: start: 201309, end: 201509
  8. RYTMONORM [Concomitant]
     Active Substance: PROPAFENONE
     Dosage: 150 MG, 3X/DAY
  9. SUTENT [Suspect]
     Active Substance: SUNITINIB MALATE
     Dosage: 37.5 MG/ DAY, CYCLIC 4/2 (4 WEEKS ON TREATMENT WITH 2 WEEKS OFF)
     Dates: start: 201304, end: 201309
  10. SUTENT [Suspect]
     Active Substance: SUNITINIB MALATE
     Dosage: 37.5 MG/DAY, CYCLIC 4/2 (4 WEEKS ON TREATMENT WITH 2 WEEKS OFF)
     Dates: start: 201509, end: 201702
  11. NEBILET [Concomitant]
     Active Substance: NEBIVOLOL
     Dosage: UNK

REACTIONS (18)
  - Blood triglycerides increased [Recovered/Resolved]
  - Palpitations [Recovered/Resolved]
  - Weight decreased [Recovered/Resolved]
  - Blood cholesterol increased [Recovered/Resolved]
  - Dizziness [Recovered/Resolved]
  - Balance disorder [Recovered/Resolved]
  - Hypothyroidism [Not Recovered/Not Resolved]
  - Diarrhoea [Recovered/Resolved]
  - Abdominal pain [Recovered/Resolved]
  - Blood glucose increased [Recovered/Resolved]
  - Nausea [Recovered/Resolved]
  - Stomatitis [Recovered/Resolved]
  - Atrophic thyroiditis [Not Recovered/Not Resolved]
  - Skin discolouration [Recovered/Resolved]
  - Skin hypertrophy [Recovered/Resolved]
  - Skin fissures [Recovered/Resolved]
  - Headache [Recovered/Resolved]
  - Dry skin [Recovered/Resolved]

NARRATIVE: CASE EVENT DATE: 201206
